FAERS Safety Report 7389702-5 (Version None)
Quarter: 2011Q2

REPORT INFORMATION
  Report Type: 
  Country: None (occurrence: None)
  Receive Date: 20110401
  Receipt Date: 20110324
  Transmission Date: 20111010
  Serious: Yes (Hospitalization)
  Sender: FDA-Public Use
  Company Number: FR-MPIJNJ-2011-01285

PATIENT

DRUGS (3)
  1. VELCADE [Suspect]
     Indication: MULTIPLE MYELOMA
     Dosage: 2.6 MG, CYCLIC
     Route: 065
     Dates: start: 20101227, end: 20110124
  2. REVLIMID [Concomitant]
     Dosage: UNK
     Route: 065
     Dates: start: 20101229, end: 20110111
  3. REVLIMID [Concomitant]
     Dosage: UNK
     Route: 065
     Dates: start: 20110117

REACTIONS (2)
  - TRANSAMINASES INCREASED [None]
  - LIPASE INCREASED [None]
